FAERS Safety Report 6722583-9 (Version None)
Quarter: 2010Q2

REPORT INFORMATION
  Report Type: 
  Country: None (occurrence: None)
  Receive Date: 20100507
  Receipt Date: 20090723
  Transmission Date: 20101027
  Serious: Yes (Other)
  Sender: FDA-Public Use
  Company Number: 84303

PATIENT
  Age: 28 Year
  Sex: Male

DRUGS (1)
  1. ACETYLCYSTEINE [Suspect]
     Indication: COUGH
     Dates: start: 20090714, end: 20090723

REACTIONS (1)
  - DRUG INEFFECTIVE [None]
